FAERS Safety Report 9635829 (Version 1)
Quarter: 2013Q4

REPORT INFORMATION
  Report Type: Spontaneous
  Country: US (occurrence: US)
  Receive Date: 20131021
  Receipt Date: 20131021
  Transmission Date: 20140711
  Serious: Yes (Other)
  Sender: FDA-Public Use
  Company Number: US-PFIZER INC-2013296816

PATIENT
  Age: 77 Year
  Sex: Male

DRUGS (2)
  1. INLYTA [Suspect]
     Indication: MALIGNANT NEOPLASM OF RENAL PELVIS
     Dosage: 10 MG, DAILY (5 MG TAKE 2 EVERY DAY)
     Route: 048
     Dates: start: 20120915
  2. INLYTA [Suspect]
     Indication: EPIDIDYMAL CANCER

REACTIONS (3)
  - Aphonia [Unknown]
  - Diarrhoea [Unknown]
  - Off label use [Unknown]
